FAERS Safety Report 9428943 (Version 1)
Quarter: 2013Q3

REPORT INFORMATION
  Report Type: Report from Study
  Country: US (occurrence: US)
  Receive Date: 20130730
  Receipt Date: 20130730
  Transmission Date: 20140515
  Serious: No
  Sender: FDA-Public Use
  Company Number: US-ABBOTT-13P-163-1041737-00

PATIENT
  Age: 71 Year
  Sex: Female
  Weight: 77.18 kg

DRUGS (4)
  1. NIASPAN (COATED) [Suspect]
     Indication: BLOOD CHOLESTEROL INCREASED
     Dosage: AT BEDTIME
     Dates: start: 201301
  2. NIASPAN (COATED) [Suspect]
     Indication: ILL-DEFINED DISORDER
  3. ASA [Concomitant]
     Indication: PRODUCT USED FOR UNKNOWN INDICATION
  4. VALSARTAN/HYDROCHLOORTHIAZIDE [Concomitant]
     Indication: PRODUCT USED FOR UNKNOWN INDICATION

REACTIONS (3)
  - Pain in extremity [Not Recovered/Not Resolved]
  - Blood glucose increased [Not Recovered/Not Resolved]
  - Initial insomnia [Not Recovered/Not Resolved]
